FAERS Safety Report 22007370 (Version 1)
Quarter: 2023Q1

REPORT INFORMATION
  Report Type: Spontaneous
  Country: US (occurrence: US)
  Receive Date: 20230218
  Receipt Date: 20230218
  Transmission Date: 20230417
  Serious: Yes (Other)
  Sender: FDA-Public Use
  Company Number: US-AMGEN-USASP2023026190

PATIENT

DRUGS (1)
  1. LUMAKRAS [Suspect]
     Active Substance: SOTORASIB
     Indication: Pancreatic carcinoma
     Dosage: 960 MILLIGRAM, QD
     Route: 048

REACTIONS (2)
  - Pancreatic carcinoma recurrent [Unknown]
  - Off label use [Unknown]
